FAERS Safety Report 15998144 (Version 2)
Quarter: 2019Q1

REPORT INFORMATION
  Report Type: Spontaneous
  Country: ES (occurrence: ES)
  Receive Date: 20190223
  Receipt Date: 20190320
  Transmission Date: 20190418
  Serious: Yes (Life-Threatening, Other)
  Sender: FDA-Public Use
  Company Number: ES-009507513-1902ESP008253

PATIENT
  Age: 68 Year
  Sex: Male
  Weight: 90 kg

DRUGS (7)
  1. BRIDION [Suspect]
     Active Substance: SUGAMMADEX
     Dosage: 200 MILLIGRAM/KILOGRAM
     Route: 042
     Dates: start: 20190206, end: 20190206
  2. FENTANYL. [Suspect]
     Active Substance: FENTANYL
     Indication: ANALGESIC THERAPY
     Dosage: 0.05 MG/KG/H, UNK
     Route: 042
     Dates: start: 20190206, end: 20190206
  3. CORTICOSTEROIDS (UNSPECIFIED) [Concomitant]
     Active Substance: UNSPECIFIED INGREDIENT
     Indication: CHRONIC OBSTRUCTIVE PULMONARY DISEASE
     Dosage: UNK
  4. PROPOFOL. [Concomitant]
     Active Substance: PROPOFOL
     Indication: HYPNOTHERAPY
     Dosage: 2-3 MICROGRAMS/ KG / MIN
     Route: 042
     Dates: start: 20190206, end: 20190206
  5. CEFAZOLIN [Concomitant]
     Active Substance: CEFAZOLIN
     Indication: ANTIBIOTIC PROPHYLAXIS
     Dosage: 2 GRAM, UNK
     Route: 042
     Dates: start: 20190206, end: 20190206
  6. BRIDION [Suspect]
     Active Substance: SUGAMMADEX
     Indication: NEUROMUSCULAR BLOCKADE REVERSAL
     Dosage: 200 MILLIGRAM
     Route: 042
     Dates: start: 20190206, end: 20190206
  7. ESMERON [Suspect]
     Active Substance: ROCURONIUM BROMIDE
     Indication: NEUROMUSCULAR BLOCKADE
     Dosage: 50 MG / 30 MIN
     Route: 042
     Dates: start: 20190206, end: 20190206

REACTIONS (3)
  - Incorrect dose administered [Unknown]
  - Extra dose administered [Unknown]
  - Respiratory depression [Recovered/Resolved]

NARRATIVE: CASE EVENT DATE: 20190206
